FAERS Safety Report 24137370 (Version 1)
Quarter: 2024Q3

REPORT INFORMATION
  Report Type: Spontaneous
  Country: IN (occurrence: US)
  Receive Date: 20240725
  Receipt Date: 20240725
  Transmission Date: 20241017
  Serious: No
  Sender: ROCHE
  Company Number: US-ROCHE-10000030711

PATIENT
  Age: 17 Year
  Sex: Male

DRUGS (5)
  1. RITUXIMAB [Suspect]
     Active Substance: RITUXIMAB
     Indication: Pemphigus
     Route: 042
  2. PREDNISOLONE [Concomitant]
     Active Substance: PREDNISOLONE
     Indication: Pemphigus
     Route: 048
  3. HYDROCORTISONE [Concomitant]
     Active Substance: HYDROCORTISONE\HYDROCORTISONE ACETATE
  4. PHENIRAMINE MALEATE [Concomitant]
     Active Substance: PHENIRAMINE MALEATE
  5. ACETAMINOPHEN [Concomitant]
     Active Substance: ACETAMINOPHEN

REACTIONS (1)
  - Serum sickness [Unknown]
